FAERS Safety Report 9180684 (Version 1)
Quarter: 2013Q1

REPORT INFORMATION
  Report Type: Spontaneous
  Country: ES (occurrence: None)
  Receive Date: 20130320
  Receipt Date: 20130320
  Transmission Date: 20140127
  Serious: Yes (Disabling, Other)
  Sender: FDA-Public Use
  Company Number: 2013P1003167

PATIENT
  Age: 72 Year
  Sex: Male

DRUGS (3)
  1. PHENYTOIN [Suspect]
     Dosage: 1600 MG; X1; 150 MG; Q8H; 100 MG; Q8H
  2. PHENYTOIN [Suspect]
     Dosage: 1600 MG; X1; 150 MG; Q8H; 100 MG; Q8H
  3. VALPROATE [Suspect]

REACTIONS (5)
  - Ophthalmoplegia [None]
  - Tracheobronchitis [None]
  - Bronchospasm [None]
  - Purulence [None]
  - Hyperammonaemia [None]
